FAERS Safety Report 5872842-7 (Version None)
Quarter: 2008Q3

REPORT INFORMATION
  Report Type: 
  Country: None (occurrence: None)
  Receive Date: 20080905
  Receipt Date: 20080903
  Transmission Date: 20090109
  Serious: Yes (Life-Threatening)
  Sender: FDA-Public Use
  Company Number: GB-BAYER-200812068BNE

PATIENT
  Age: 68 Year
  Sex: Male
  Weight: 71 kg

DRUGS (20)
  1. SORAFENIB [Suspect]
     Indication: NON-SMALL CELL LUNG CANCER
     Dosage: TOTAL DAILY DOSE: 800 MG
     Route: 048
     Dates: start: 20080627, end: 20080703
  2. SORAFENIB [Suspect]
     Dosage: TOTAL DAILY DOSE: 800 MG
     Route: 048
     Dates: start: 20080710, end: 20080716
  3. SORAFENIB [Suspect]
     Dosage: TOTAL DAILY DOSE: 800 MG
     Route: 048
     Dates: start: 20080717, end: 20080730
  4. GEMCITABINE [Suspect]
     Indication: NON-SMALL CELL LUNG CANCER
     Dates: start: 20080627, end: 20080627
  5. GEMCITABINE [Suspect]
     Dates: start: 20080724, end: 20080724
  6. GEMCITABINE [Suspect]
     Dates: start: 20080718, end: 20080718
  7. CISPLATIN [Suspect]
     Indication: NON-SMALL CELL LUNG CANCER
     Dates: start: 20080627, end: 20080627
  8. CISPLATIN [Suspect]
     Dates: start: 20080718, end: 20080718
  9. ACETAMINOPHEN W/ CODEINE [Concomitant]
     Indication: PAIN
     Dates: start: 20080605
  10. MORPHINE SULFATE [Concomitant]
     Indication: PAIN
     Dates: start: 20080704
  11. ONDANSETRON [Concomitant]
     Indication: NAUSEA
     Dosage: TOTAL DAILY DOSE: 16 MG
     Dates: start: 20080704, end: 20080709
  12. DEXMETHASONE [Concomitant]
     Indication: PROPHYLAXIS
     Dates: start: 20080628, end: 20080701
  13. METOCLOPROMIDE [Concomitant]
     Indication: NAUSEA
     Dates: start: 20080628, end: 20080705
  14. MOVICOL [Concomitant]
     Indication: CONSTIPATION
     Dates: start: 20080709
  15. DICLOFENAC SODIUM [Concomitant]
     Indication: PAIN
     Dates: start: 20080624
  16. OMEPRAZOLE [Concomitant]
     Indication: PROPHYLAXIS
     Dates: start: 20080624
  17. CYCLIZINE [Concomitant]
     Indication: NAUSEA
     Dates: start: 20080620
  18. TRAMADOL HCL [Concomitant]
     Indication: PAIN
     Dates: start: 20080617
  19. BENDROFLUMETHIAZIDE [Concomitant]
     Indication: DIURETIC THERAPY
     Dates: start: 20080421
  20. ASACOL [Concomitant]
     Indication: DIVERTICULUM
     Dates: start: 20080318

REACTIONS (1)
  - DEEP VEIN THROMBOSIS [None]
